FAERS Safety Report 21032342 (Version 1)
Quarter: 2022Q3

REPORT INFORMATION
  Report Type: Spontaneous
  Country: FR (occurrence: FR)
  Receive Date: 20220701
  Receipt Date: 20220701
  Transmission Date: 20221027
  Serious: Yes (Other)
  Sender: FDA-Public Use
  Company Number: None

PATIENT
  Age: 67 Year
  Sex: Male
  Weight: 68 kg

DRUGS (6)
  1. FILGRASTIM [Suspect]
     Active Substance: FILGRASTIM
     Indication: Chemotherapy cytokine prophylaxis
     Dosage: 4 DF, CYCLIC
     Route: 058
     Dates: start: 20220307, end: 20220529
  2. MABTHERA [Suspect]
     Active Substance: RITUXIMAB
     Indication: Marginal zone lymphoma
     Dosage: 650 MG, CYCLIC
     Route: 042
     Dates: start: 20220301, end: 20220519
  3. BENDAMUSTINE [Suspect]
     Active Substance: BENDAMUSTINE
     Indication: Marginal zone lymphoma
     Dosage: 320 MG, CYCLIC
     Route: 042
     Dates: start: 20220301, end: 20220519
  4. PREDNISONE [Suspect]
     Active Substance: PREDNISONE
     Indication: Marginal zone lymphoma
     Dosage: 70 MG, CYCLIC
     Route: 048
     Dates: start: 20220301, end: 20220519
  5. LEUCOVORIN CALCIUM [Concomitant]
     Active Substance: LEUCOVORIN CALCIUM
     Dosage: 1 DF, WEEKLY
     Route: 048
     Dates: start: 20220301
  6. ATOVAQUONE [Concomitant]
     Active Substance: ATOVAQUONE
     Dosage: 2 DF, 1X/DAY
     Route: 048
     Dates: start: 20220307

REACTIONS (2)
  - Erythema nodosum [Recovering/Resolving]
  - Off label use [Unknown]

NARRATIVE: CASE EVENT DATE: 20220430
